FAERS Safety Report 25862244 (Version 1)
Quarter: 2025Q3

REPORT INFORMATION
  Report Type: Spontaneous
  Country: US (occurrence: US)
  Receive Date: 20250930
  Receipt Date: 20250930
  Transmission Date: 20251021
  Serious: Yes (Other)
  Sender: ASTELLAS
  Company Number: US-ASTELLAS-2025-AER-051982

PATIENT
  Sex: Male

DRUGS (6)
  1. IZERVAY [Suspect]
     Active Substance: AVACINCAPTAD PEGOL SODIUM
     Indication: Product used for unknown indication
     Route: 065
  2. IZERVAY [Suspect]
     Active Substance: AVACINCAPTAD PEGOL SODIUM
     Route: 065
     Dates: start: 20250908, end: 20250908
  3. IZERVAY [Suspect]
     Active Substance: AVACINCAPTAD PEGOL SODIUM
  4. IZERVAY [Suspect]
     Active Substance: AVACINCAPTAD PEGOL SODIUM
  5. IZERVAY [Suspect]
     Active Substance: AVACINCAPTAD PEGOL SODIUM
  6. IZERVAY [Suspect]
     Active Substance: AVACINCAPTAD PEGOL SODIUM

REACTIONS (4)
  - Endophthalmitis [Unknown]
  - Ocular vasculitis [Unknown]
  - Eye pain [Unknown]
  - Vision blurred [Unknown]

NARRATIVE: CASE EVENT DATE: 20250901
